FAERS Safety Report 4285935-5 (Version None)
Quarter: 2004Q1

REPORT INFORMATION
  Report Type: 
  Country: None (occurrence: None)
  Receive Date: 20040203
  Receipt Date: 20040126
  Transmission Date: 20041129
  Serious: Yes (Other)
  Sender: FDA-Public Use
  Company Number: 2004005481

PATIENT
  Age: 73 Year
  Sex: Male
  Weight: 103 kg

DRUGS (11)
  1. LIPITOR [Suspect]
     Indication: ILL-DEFINED DISORDER
     Dosage: 40 MG (DAILY); UNKNOWN
     Route: 065
     Dates: end: 20030901
  2. TRACLEER [Suspect]
     Indication: PULMONARY HYPERTENSION
     Dosage: 125 MG (BID); ORAL
     Route: 048
     Dates: start: 20020601
  3. PREDNISONE [Concomitant]
  4. ACETYLCYSTEINE [Concomitant]
  5. METOLAZONE [Concomitant]
  6. FUROSEMIDE [Concomitant]
  7. BACTRIM [Concomitant]
  8. MVI 3 (BIOTIN, FOLIC ACID, CYANOCOBALAMIN) [Concomitant]
  9. ACETYLSALICYLIC ACID SRT [Concomitant]
  10. OMEPRAZOLE [Concomitant]
  11. AZATHIOPRINE [Concomitant]

REACTIONS (6)
  - CHILLS [None]
  - EAR DISORDER [None]
  - INFLAMMATION [None]
  - PULMONARY FIBROSIS [None]
  - PULMONARY HYPERTENSION [None]
  - RHINITIS [None]
